FAERS Safety Report 4552216-1 (Version None)
Quarter: 2004Q4

REPORT INFORMATION
  Report Type: 
  Country: None (occurrence: None)
  Receive Date: 20041217
  Receipt Date: 20040809
  Transmission Date: 20050328
  Serious: No
  Sender: FDA-Public Use
  Company Number: 2004-BP-06616BP

PATIENT
  Sex: Female

DRUGS (14)
  1. SPIRIVA [Suspect]
     Indication: CHRONIC OBSTRUCTIVE AIRWAYS DISEASE
     Dosage: 18 MCG (18 MCG), IH
     Route: 055
     Dates: start: 20040501
  2. PREDNISONE [Suspect]
     Indication: CHRONIC OBSTRUCTIVE AIRWAYS DISEASE
     Dosage: 20 MG (20 MG DAILY), PO
     Route: 048
  3. ALBUTEROL [Concomitant]
  4. ATROVENT [Concomitant]
  5. VISINE TEARS (TETRYZOLINE HYDROCHLORIDE) [Concomitant]
  6. LESCOL [Concomitant]
  7. GLYBURIDE [Concomitant]
  8. TRIAM/HCTZ [Concomitant]
  9. GEMFIBROZIL [Concomitant]
  10. PREDNISONE [Concomitant]
  11. CLARATAN [Concomitant]
  12. THEOPHYLLINE [Concomitant]
  13. GLUCOPHAGE XR [Concomitant]
  14. VITAMINS (VITAMINS) [Concomitant]

REACTIONS (5)
  - DYSPNOEA [None]
  - FATIGUE [None]
  - HYPOKINESIA [None]
  - INSOMNIA [None]
  - VISION BLURRED [None]
